FAERS Safety Report 23427565 (Version 1)
Quarter: 2024Q1

REPORT INFORMATION
  Report Type: Spontaneous
  Country: US (occurrence: None)
  Receive Date: 20240119
  Receipt Date: 20240119
  Transmission Date: 20240410
  Serious: Yes (Hospitalization)
  Sender: FDA-Public Use
  Company Number: None

PATIENT
  Age: 57 Year
  Sex: Female

DRUGS (1)
  1. CYANOCOBALAMIN\SEMAGLUTIDE [Suspect]
     Active Substance: CYANOCOBALAMIN\SEMAGLUTIDE
     Dosage: 0.05 MG/ML WEEKLY SUBCUTANEOUS
     Route: 058
     Dates: start: 20231229, end: 20231229

REACTIONS (3)
  - Product administration error [None]
  - Incorrect dose administered [None]
  - Vomiting [None]

NARRATIVE: CASE EVENT DATE: 20231229
